FAERS Safety Report 5019314-X (Version None)
Quarter: 2006Q2

REPORT INFORMATION
  Report Type: 
  Country: None (occurrence: None)
  Receive Date: 20060606
  Receipt Date: 20060526
  Transmission Date: 20061013
  Serious: Yes (Death, Congenital Anomaly)
  Sender: FDA-Public Use
  Company Number: BR-ROCHE-449658

PATIENT
  Age: 1 Hour

DRUGS (1)
  1. RIVOTRIL [Suspect]
     Indication: ANXIETY
     Dosage: INDICATION - ANXIETY AND VERITGO
     Dates: start: 20030415, end: 20060315

REACTIONS (4)
  - AORTIC DISORDER [None]
  - CARDIAC MURMUR [None]
  - DRUG EXPOSURE DURING PREGNANCY [None]
  - MULTI-ORGAN FAILURE [None]
